FAERS Safety Report 8162425-0 (Version None)
Quarter: 2012Q1

REPORT INFORMATION
  Report Type: 
  Country: None (occurrence: None)
  Receive Date: 20120224
  Receipt Date: 20120214
  Transmission Date: 20120608
  Serious: Yes (Death)
  Sender: FDA-Public Use
  Company Number: FR-SANOFI-AVENTIS-2012SA009760

PATIENT
  Age: 50 Year
  Sex: Male

DRUGS (6)
  1. ZOLPIDEM [Suspect]
     Dosage: STRENGTH: 10 MG
     Route: 048
     Dates: start: 20111222
  2. MIANSERINE [Suspect]
     Route: 048
     Dates: start: 20111222
  3. REBETOL [Suspect]
     Indication: HEPATITIS C
     Dosage: STRENGTH: 200 MG
     Route: 048
     Dates: start: 20111004
  4. ACETAMINOPHEN [Suspect]
     Dosage: DOSE:3 UNIT(S)
     Route: 048
  5. RIBAVIRIN [Suspect]
     Indication: HEPATITIS C
     Dosage: STRENGTH: 200 MG
     Route: 048
     Dates: start: 20111111
  6. VIRAFERONPEG [Suspect]
     Indication: HEPATITIS C
     Dosage: STRENGTH: 120 MCG
     Route: 058
     Dates: start: 20111004

REACTIONS (1)
  - SUDDEN DEATH [None]
